FAERS Safety Report 8117618-5 (Version None)
Quarter: 2012Q1

REPORT INFORMATION
  Report Type: 
  Country: None (occurrence: None)
  Receive Date: 20120207
  Receipt Date: 20120130
  Transmission Date: 20120608
  Serious: No
  Sender: FDA-Public Use
  Company Number: US-BIOGENIDEC-2012BI003725

PATIENT
  Age: 47 Year
  Sex: Female

DRUGS (5)
  1. LORAZEPAM [Concomitant]
     Indication: ANXIETY
  2. METOPROLOL [Concomitant]
     Indication: BLOOD PRESSURE
  3. AVONEX [Suspect]
     Route: 030
     Dates: start: 20110601
  4. ENALAPRIL MALEATE [Concomitant]
     Indication: BLOOD PRESSURE
  5. AVONEX [Suspect]
     Indication: MULTIPLE SCLEROSIS
     Route: 030
     Dates: start: 20080423, end: 20090616

REACTIONS (5)
  - GASTROENTERITIS VIRAL [None]
  - NAUSEA [None]
  - MULTIPLE SCLEROSIS RELAPSE [None]
  - HEADACHE [None]
  - COLD SWEAT [None]
